FAERS Safety Report 11546415 (Version 2)
Quarter: 2015Q3

REPORT INFORMATION
  Report Type: Spontaneous
  Country: US (occurrence: US)
  Receive Date: 20150924
  Receipt Date: 20150930
  Transmission Date: 20151125
  Serious: Yes (Hospitalization)
  Sender: FDA-Public Use
  Company Number: US-LPDUSPRD-20150711

PATIENT
  Age: 65 Year
  Sex: Male
  Weight: 120 kg

DRUGS (17)
  1. ATENOLOL. [Concomitant]
     Active Substance: ATENOLOL
     Dosage: 1 TABLET TWICE DAILY
     Route: 048
  2. RENAGEL [Concomitant]
     Active Substance: SEVELAMER HYDROCHLORIDE
     Dosage: 3 TABS, THREE TIMES PER DAY
     Route: 048
  3. VITAMIN D3 [Concomitant]
     Active Substance: CHOLECALCIFEROL
     Dosage: 1 CAPSULE DAILY
     Route: 048
  4. FRESENIUS PD SOLUTION [Suspect]
     Active Substance: CALCIUM CHLORIDE\DEXTROSE MONOHYDRATE\MAGNESIUM CHLORIDE\SODIUM CHLORIDE\SODIUM LACTATE
     Dosage: PERITONEAL DIALYSIS
     Route: 065
  5. LOSARTAN. [Concomitant]
     Active Substance: LOSARTAN
     Dosage: 1 TABLET DAILY
     Route: 048
  6. GENTAMICIN. [Concomitant]
     Active Substance: GENTAMICIN
     Dosage: DAILY TO PD CATH EXIT SITE
     Route: 061
  7. VENOFER [Suspect]
     Active Substance: IRON SUCROSE
     Dosage: DOSE UNKNOWN, ADM. PRN
     Route: 042
     Dates: start: 20121031
  8. NORVASC [Concomitant]
     Active Substance: AMLODIPINE BESYLATE
     Dosage: 1 TABLET ONCE A DAY
     Route: 048
  9. PHOSLO [Concomitant]
     Active Substance: CALCIUM ACETATE
     Dosage: 1 CAPSULE 3 TIMES DAILY
     Route: 048
  10. LIBERTY CYCLER SET [Suspect]
     Active Substance: DEVICE
     Dosage: PERITONEAL DIALYSIS
     Route: 065
  11. EPOGEN [Concomitant]
     Active Substance: ERYTHROPOIETIN
     Dosage: 10,000 UNITS WEEKLY
     Route: 058
  12. B COMPLEX WITH C#20 FOLID ACID [Concomitant]
     Dosage: 1 CAPSULE DAILY
     Route: 048
  13. ASPIRIN. [Concomitant]
     Active Substance: ASPIRIN
     Dosage: 1 TABLET EVERY OTHER DAY
     Route: 048
  14. LIBERTY CYCLER [Suspect]
     Active Substance: DEVICE
     Dosage: PERITONEAL DIALYSIS
     Route: 065
  15. SENSIPAR [Concomitant]
     Active Substance: CINACALCET HYDROCHLORIDE
     Dosage: 1 TABLET DAILY
     Route: 048
  16. TRAZODONE [Concomitant]
     Active Substance: TRAZODONE HYDROCHLORIDE
     Dosage: 1 TABLET AT BEDTIME
     Route: 048
  17. FUROSEMIDE. [Concomitant]
     Active Substance: FUROSEMIDE
     Dosage: 1 TABLET DAILY
     Route: 048

REACTIONS (11)
  - Sinus bradycardia [Recovering/Resolving]
  - Bundle branch block left [None]
  - Oedema peripheral [None]
  - Pulmonary oedema [Recovering/Resolving]
  - Cardiomegaly [None]
  - Hyperkalaemia [Recovering/Resolving]
  - Treatment noncompliance [None]
  - Peritonitis [Unknown]
  - Electrocardiogram T wave inversion [None]
  - Fluid overload [Unknown]
  - Staphylococcal infection [None]

NARRATIVE: CASE EVENT DATE: 20150515
